FAERS Safety Report 13718756 (Version 2)
Quarter: 2017Q3

REPORT INFORMATION
  Report Type: Spontaneous
  Country: US (occurrence: US)
  Receive Date: 20170705
  Receipt Date: 20170731
  Transmission Date: 20171127
  Serious: Yes (Hospitalization)
  Sender: FDA-Public Use
  Company Number: US-INDIVIOR LIMITED-INDV-103010-2017

PATIENT
  Age: 37 Year
  Sex: Male

DRUGS (1)
  1. SUBOXONE [Suspect]
     Active Substance: BUPRENORPHINE HYDROCHLORIDE\NALOXONE HYDROCHLORIDE
     Indication: DRUG USE DISORDER
     Dosage: 8MG, TWICE DAILY
     Route: 065

REACTIONS (6)
  - Drug dependence [Unknown]
  - Gastric disorder [Unknown]
  - Product use issue [Unknown]
  - Nausea [Unknown]
  - Therapeutic response unexpected [Unknown]
  - Pain [Unknown]

NARRATIVE: CASE EVENT DATE: 2016
